FAERS Safety Report 15597953 (Version 2)
Quarter: 2018Q4

REPORT INFORMATION
  Report Type: Spontaneous
  Country: JP (occurrence: JP)
  Receive Date: 20181108
  Receipt Date: 20181112
  Transmission Date: 20190205
  Serious: Yes (Other)
  Sender: FDA-Public Use
  Company Number: JP-ASTRAZENECA-2018SE90660

PATIENT
  Age: 80 Year
  Sex: Female

DRUGS (3)
  1. IRESSA [Suspect]
     Active Substance: GEFITINIB
     Indication: NON-SMALL CELL LUNG CANCER RECURRENT
     Route: 048
     Dates: start: 2018, end: 2018
  2. IRESSA [Suspect]
     Active Substance: GEFITINIB
     Indication: NON-SMALL CELL LUNG CANCER RECURRENT
     Route: 048
     Dates: start: 2018, end: 2018
  3. RANMARK [Concomitant]
     Active Substance: DENOSUMAB
     Route: 058
     Dates: start: 2018

REACTIONS (5)
  - Off label use [Unknown]
  - Metastases to bone [Unknown]
  - Decreased appetite [Recovering/Resolving]
  - Malignant neoplasm progression [Unknown]
  - Transaminases increased [Unknown]

NARRATIVE: CASE EVENT DATE: 2018
